FAERS Safety Report 19236469 (Version 3)
Quarter: 2021Q2

REPORT INFORMATION
  Report Type: Spontaneous
  Country: US (occurrence: US)
  Receive Date: 20210510
  Receipt Date: 20210520
  Transmission Date: 20210717
  Serious: No
  Sender: FDA-Public Use
  Company Number: US-ORGANON-O2105USA000374

PATIENT
  Sex: Female
  Weight: 96.15 kg

DRUGS (3)
  1. CYCLOBENZAPRINE. [Concomitant]
     Active Substance: CYCLOBENZAPRINE
  2. NEXPLANON [Suspect]
     Active Substance: ETONOGESTREL
     Indication: CONTRACEPTION
     Dosage: 1 IMPLANT FOR 3 YEARS IN THE RIGHT ARM
     Route: 059
     Dates: start: 20210419
  3. NAPROXEN. [Concomitant]
     Active Substance: NAPROXEN

REACTIONS (3)
  - Implant site pain [Not Recovered/Not Resolved]
  - Implant site inflammation [Recovering/Resolving]
  - Implant site erythema [Recovering/Resolving]

NARRATIVE: CASE EVENT DATE: 2021
